FAERS Safety Report 8138898-6 (Version None)
Quarter: 2012Q1

REPORT INFORMATION
  Report Type: 
  Country: None (occurrence: None)
  Receive Date: 20120215
  Receipt Date: 20120206
  Transmission Date: 20120608
  Serious: Yes (Hospitalization, Other)
  Sender: FDA-Public Use
  Company Number: FR-ELI_LILLY_AND_COMPANY-FR201202001371

PATIENT
  Age: 81 Year
  Sex: Female

DRUGS (1)
  1. GEMZAR [Suspect]
     Dosage: 785 MG, UNK
     Dates: start: 20110517, end: 20110708

REACTIONS (8)
  - PLEURAL EFFUSION [None]
  - CARDIAC FAILURE [None]
  - ASTHENIA [None]
  - OEDEMA PERIPHERAL [None]
  - ACUTE RESPIRATORY DISTRESS SYNDROME [None]
  - BRAIN NATRIURETIC PEPTIDE INCREASED [None]
  - OEDEMA [None]
  - DYSPNOEA [None]
